FAERS Safety Report 24612951 (Version 1)
Quarter: 2024Q4

REPORT INFORMATION
  Report Type: Spontaneous
  Country: US (occurrence: None)
  Receive Date: 20241113
  Receipt Date: 20241113
  Transmission Date: 20250114
  Serious: Yes (Hospitalization)
  Sender: Public
  Company Number: None

PATIENT
  Age: 54 Year
  Sex: Male
  Weight: 102.8 kg

DRUGS (3)
  1. CARBOPLATIN [Suspect]
     Active Substance: CARBOPLATIN
     Dates: end: 20241104
  2. CETUXIMAB [Suspect]
     Active Substance: CETUXIMAB
     Dates: end: 20241104
  3. DOCETAXEL [Suspect]
     Active Substance: DOCETAXEL
     Dates: start: 20241104, end: 20241104

REACTIONS (3)
  - Dysphagia [None]
  - Weight decreased [None]
  - Thrombosis [None]

NARRATIVE: CASE EVENT DATE: 20241108
